FAERS Safety Report 10023757 (Version 2)
Quarter: 2014Q2

REPORT INFORMATION
  Report Type: Spontaneous
  Country: US (occurrence: US)
  Receive Date: 20140320
  Receipt Date: 20140515
  Transmission Date: 20141212
  Serious: Yes (Death, Hospitalization, Other)
  Sender: FDA-Public Use
  Company Number: US-009507513-1403USA008978

PATIENT
  Sex: Male
  Weight: 82.81 kg

DRUGS (7)
  1. JANUMET [Suspect]
     Indication: TYPE 2 DIABETES MELLITUS
     Dosage: 50/500MG BID
     Route: 048
     Dates: start: 20080708, end: 20120411
  2. JANUMET [Suspect]
     Dosage: 50/1000 MG, BID
     Route: 048
     Dates: start: 20111114, end: 20120411
  3. JANUVIA [Suspect]
     Indication: TYPE 2 DIABETES MELLITUS
     Route: 048
  4. GLIPIZIDE [Concomitant]
     Indication: TYPE 2 DIABETES MELLITUS
     Dosage: 5-10MG BID
     Route: 048
  5. GLIPIZIDE XL [Concomitant]
     Indication: TYPE 2 DIABETES MELLITUS
     Dosage: 5 MG, UNK
     Route: 048
  6. METFORMIN [Concomitant]
     Indication: TYPE 2 DIABETES MELLITUS
     Dosage: 500 MG, BID
  7. METFORMIN HYDROCHLORIDE [Concomitant]
     Indication: TYPE 2 DIABETES MELLITUS

REACTIONS (38)
  - Adenocarcinoma pancreas [Fatal]
  - Metastases to liver [Unknown]
  - Metastases to the respiratory system [Unknown]
  - Peripheral artery stent insertion [Unknown]
  - Aortic aneurysm repair [Unknown]
  - Vascular graft [Unknown]
  - Emotional distress [Unknown]
  - Anxiety [Unknown]
  - Stress [Unknown]
  - Depression [Unknown]
  - Fear of death [Unknown]
  - Hyperglycaemia [Unknown]
  - Pancreatic steatosis [Unknown]
  - Emphysema [Unknown]
  - Pleural calcification [Unknown]
  - Lipomatosis [Unknown]
  - Lung hyperinflation [Unknown]
  - Pancreatic duct dilatation [Unknown]
  - Diabetes mellitus inadequate control [Unknown]
  - Diverticulum intestinal [Unknown]
  - Spinal osteoarthritis [Unknown]
  - Arteriosclerosis [Unknown]
  - Cataract operation [Unknown]
  - Peripheral vascular disorder [Unknown]
  - Incision site haemorrhage [Unknown]
  - Pneumonia [Unknown]
  - Vision blurred [Unknown]
  - Thrombosis [Unknown]
  - Depression [Unknown]
  - Balance disorder [Unknown]
  - Chronic obstructive pulmonary disease [Unknown]
  - Aortic aneurysm [Unknown]
  - Phlebitis [Unknown]
  - Seborrhoea [Unknown]
  - Skin disorder [Unknown]
  - Cough [Not Recovered/Not Resolved]
  - Muscle spasms [Unknown]
  - Pain in extremity [Unknown]
